FAERS Safety Report 15615011 (Version 2)
Quarter: 2019Q2

REPORT INFORMATION
  Report Type: Report from Study
  Country: US (occurrence: US)
  Receive Date: 20181114
  Receipt Date: 20190603
  Transmission Date: 20190711
  Serious: No
  Sender: FDA-Public Use
  Company Number: US-ALEXION PHARMACEUTICALS INC.-A201814788

PATIENT
  Sex: Female

DRUGS (1)
  1. STRENSIQ [Suspect]
     Active Substance: ASFOTASE ALFA
     Indication: PRODUCT USED FOR UNKNOWN INDICATION
     Dosage: UNK
     Route: 065

REACTIONS (7)
  - Troponin increased [Unknown]
  - Anion gap abnormal [Unknown]
  - Blood calcium abnormal [Unknown]
  - Nausea [Unknown]
  - Blood urea abnormal [Unknown]
  - Dizziness [Unknown]
  - Hot flush [Unknown]
